FAERS Safety Report 15402719 (Version 1)
Quarter: 2018Q3

REPORT INFORMATION
  Report Type: Spontaneous
  Country: US (occurrence: US)
  Receive Date: 20180917
  Receipt Date: 20180917
  Transmission Date: 20181010
  Serious: Yes (Other)
  Sender: FDA-Public Use
  Company Number: None

PATIENT
  Age: 54 Year
  Sex: Female
  Weight: 72 kg

DRUGS (3)
  1. LOSASARTAN [Concomitant]
  2. ARMOUR THYROID [Concomitant]
     Active Substance: THYROID, PORCINE
  3. UNKNOWN MRI CONTRAST MEDIUM [Suspect]
     Active Substance: UNSPECIFIED INGREDIENT

REACTIONS (1)
  - Urticaria [None]

NARRATIVE: CASE EVENT DATE: 20180917
